FAERS Safety Report 10183348 (Version 2)
Quarter: 2014Q4

REPORT INFORMATION
  Report Type: Spontaneous
  Country: JP (occurrence: JP)
  Receive Date: 20140520
  Receipt Date: 20141003
  Transmission Date: 20150528
  Serious: Yes (Death, Other)
  Sender: FDA-Public Use
  Company Number: JP-BAYER-2014-072198

PATIENT
  Sex: Male

DRUGS (2)
  1. NEXAVAR [Suspect]
     Active Substance: SORAFENIB
     Indication: HEPATOCELLULAR CARCINOMA
     Dosage: UNK
     Route: 048
     Dates: start: 20130604
  2. ANGIOTENSIN II [Concomitant]
     Active Substance: ANGIOTENSIN II
     Dosage: UNK
     Route: 048

REACTIONS (3)
  - Fall [None]
  - Hepatocellular carcinoma [Fatal]
  - Subdural haematoma [None]

NARRATIVE: CASE EVENT DATE: 20131124
